FAERS Safety Report 9800817 (Version 2)
Quarter: 2014Q3

REPORT INFORMATION
  Report Type: Report from Study
  Country: CA (occurrence: CA)
  Receive Date: 20140107
  Receipt Date: 20140701
  Transmission Date: 20150326
  Serious: Yes (Death, Hospitalization)
  Sender: FDA-Public Use
  Company Number: CA-ROCHE-1330118

PATIENT
  Age: 87 Year
  Sex: Female
  Weight: 36.32 kg

DRUGS (8)
  1. LUCENTIS [Suspect]
     Active Substance: RANIBIZUMAB
     Route: 050
     Dates: start: 20120601
  2. TRIAZIDE [Concomitant]
     Route: 065
     Dates: start: 1997
  3. LUCENTIS [Suspect]
     Active Substance: RANIBIZUMAB
     Indication: AGE-RELATED MACULAR DEGENERATION
     Route: 050
     Dates: start: 201309
  4. LUCENTIS [Suspect]
     Active Substance: RANIBIZUMAB
     Route: 050
     Dates: start: 201310
  5. AMLODIPINE [Concomitant]
     Active Substance: AMLODIPINE BESYLATE
     Route: 065
     Dates: start: 1997
  6. ZOPICLONE [Concomitant]
     Active Substance: ZOPICLONE
     Route: 065
     Dates: start: 2009
  7. ASAPHEN [Concomitant]
     Active Substance: ASPIRIN
     Route: 065
     Dates: start: 1997
  8. LUCENTIS [Suspect]
     Active Substance: RANIBIZUMAB
     Route: 050
     Dates: start: 20131128

REACTIONS (5)
  - Hip fracture [Unknown]
  - Pain [Unknown]
  - Transient ischaemic attack [Unknown]
  - Fall [Unknown]
  - Syncope [Fatal]

NARRATIVE: CASE EVENT DATE: 20131221
